FAERS Safety Report 7980316-2 (Version None)
Quarter: 2011Q4

REPORT INFORMATION
  Report Type: 
  Country: None (occurrence: None)
  Receive Date: 20111214
  Receipt Date: 20111207
  Transmission Date: 20120403
  Serious: Yes (Other)
  Sender: FDA-Public Use
  Company Number: PHHY2011NL106925

PATIENT
  Age: 49 Year
  Sex: Male

DRUGS (3)
  1. METHOTREXATE [Suspect]
     Indication: PSORIATIC ARTHROPATHY
     Dosage: 10 MG, PER WEEK
  2. METHOTREXATE [Suspect]
     Dosage: 7.5 MG, PER WEEK
  3. METHOTREXATE [Suspect]
     Dosage: 10 MG, PER WEEK

REACTIONS (4)
  - MEDIAL TIBIAL STRESS SYNDROME [None]
  - BONE MARROW OEDEMA [None]
  - PSORIATIC ARTHROPATHY [None]
  - PAIN IN EXTREMITY [None]
